FAERS Safety Report 16995347 (Version 1)
Quarter: 2019Q4

REPORT INFORMATION
  Report Type: Spontaneous
  Country: FR (occurrence: FR)
  Receive Date: 20191105
  Receipt Date: 20191105
  Transmission Date: 20200122
  Serious: Yes (Other)
  Sender: FDA-Public Use
  Company Number: FR-MYLANLABS-2019M1104475

PATIENT
  Age: 79 Year
  Sex: Male

DRUGS (14)
  1. FUMAFER [Concomitant]
     Active Substance: FERROUS FUMARATE
     Dosage: INCONNUE
     Route: 048
  2. KARDEGIC [Concomitant]
     Active Substance: ASPIRIN DL-LYSINE
     Dosage: INCONNUE
     Route: 048
  3. PREVISCAN                          /00789001/ [Concomitant]
     Active Substance: FLUINDIONE
     Dosage: INCONNUE
     Route: 048
  4. TAMSULOSINE                        /01280301/ [Concomitant]
     Active Substance: TAMSULOSIN
     Dosage: INCONNUE
     Route: 048
  5. LERCAN [Concomitant]
     Active Substance: LERCANIDIPINE
     Dosage: INCONNUE
     Route: 048
  6. FENTANYL. [Suspect]
     Active Substance: FENTANYL
     Indication: PAIN
     Dosage: 25 MICROGRAM, QH
     Route: 062
     Dates: end: 20190409
  7. ATHYMIL [Concomitant]
     Active Substance: MIANSERIN HYDROCHLORIDE
     Dosage: INCONNUE
     Route: 048
  8. OXYCODONE [Interacting]
     Active Substance: OXYCODONE
     Indication: PAIN
     Dosage: 15 MILLIGRAM
     Route: 048
     Dates: start: 20190409, end: 20190409
  9. SIMVASTATINE [Concomitant]
     Active Substance: SIMVASTATIN
     Dosage: INCONNUE
     Route: 048
  10. FUROSEMIDE. [Concomitant]
     Active Substance: FUROSEMIDE
     Dosage: INCONNUE
     Route: 048
  11. LYRICA [Interacting]
     Active Substance: PREGABALIN
     Indication: PAIN
     Dosage: 2 DOSAGE FORM, QD
     Route: 048
     Dates: start: 20190409
  12. DOLIPRANE [Concomitant]
     Active Substance: ACETAMINOPHEN
     Indication: PAIN
     Dosage: INCONNUE
     Route: 048
  13. DIFFU K [Concomitant]
     Active Substance: POTASSIUM CHLORIDE
     Dosage: INCONNUE
     Route: 048
  14. ESOMEPRAZOLE. [Concomitant]
     Active Substance: ESOMEPRAZOLE MAGNESIUM
     Dosage: INCONNUE
     Route: 048

REACTIONS (5)
  - Myoclonus [Recovered/Resolved]
  - Miosis [Recovered/Resolved]
  - Hallucination [Recovered/Resolved]
  - Drug interaction [Unknown]
  - Somnolence [Recovered/Resolved]

NARRATIVE: CASE EVENT DATE: 20190410
